FAERS Safety Report 11471892 (Version 1)
Quarter: 2015Q3

REPORT INFORMATION
  Report Type: Spontaneous
  Country: US (occurrence: US)
  Receive Date: 20150908
  Receipt Date: 20150908
  Transmission Date: 20151125
  Serious: Yes (Hospitalization)
  Sender: FDA-Public Use
  Company Number: US-JNJFOC-20150823729

PATIENT
  Sex: Male
  Weight: 103.42 kg

DRUGS (1)
  1. RISPERDAL CONSTA [Suspect]
     Active Substance: RISPERIDONE
     Indication: SCHIZOPHRENIA, PARANOID TYPE
     Dosage: 25MG OR 50MG
     Route: 058

REACTIONS (4)
  - Hospitalisation [Unknown]
  - Protrusion tongue [Not Recovered/Not Resolved]
  - Dysgraphia [Unknown]
  - Incorrect route of drug administration [Unknown]
